FAERS Safety Report 19443459 (Version 2)
Quarter: 2022Q2

REPORT INFORMATION
  Report Type: Spontaneous
  Country: BE (occurrence: BE)
  Receive Date: 20210621
  Receipt Date: 20220614
  Transmission Date: 20220721
  Serious: Yes (Other)
  Sender: FDA-Public Use
  Company Number: BE-002147023-NVSC2021BE114686

PATIENT
  Age: 74 Year
  Weight: 95 kg

DRUGS (12)
  1. ISAVUCONAZONIUM SULFATE [Interacting]
     Active Substance: ISAVUCONAZONIUM SULFATE
     Indication: Aspergillus infection
     Dosage: 600 MG (200 MG,1 IN 8 HR)
     Route: 042
  2. ISAVUCONAZONIUM SULFATE [Interacting]
     Active Substance: ISAVUCONAZONIUM SULFATE
     Dosage: 200 MG (200 MG,1 IN 24 HR)
     Route: 042
  3. ISAVUCONAZONIUM SULFATE [Interacting]
     Active Substance: ISAVUCONAZONIUM SULFATE
     Dosage: 300 MG ONCE DAILY FROM DAY 8 ON
     Route: 042
  4. ISAVUCONAZONIUM SULFATE [Interacting]
     Active Substance: ISAVUCONAZONIUM SULFATE
     Dosage: 500 MG ONCE DAILY FROM DAY 14 ON
     Route: 042
  5. VORICONAZOLE [Interacting]
     Active Substance: VORICONAZOLE
     Indication: Aspergillus infection
     Dosage: 600 MG, 2X/DAY
  6. VORICONAZOLE [Interacting]
     Active Substance: VORICONAZOLE
     Dosage: 400 MG, 2X/DAY
  7. RIFABUTIN [Interacting]
     Active Substance: RIFABUTIN
     Indication: Staphylococcal sepsis
     Dosage: UNK
     Route: 048
  8. RIFAMPIN [Interacting]
     Active Substance: RIFAMPIN
     Indication: Staphylococcal sepsis
     Dosage: 900 MG (300 MG,1 IN 8 HR)
     Route: 042
  9. RIFAMPIN [Interacting]
     Active Substance: RIFAMPIN
     Dosage: UNK, RESTARTED
     Route: 065
  10. FLUCLOXACILLIN [Interacting]
     Active Substance: FLUCLOXACILLIN
     Indication: Staphylococcal sepsis
     Dosage: 2 G, 4X/DAY
     Route: 042
  11. CASPOFUNGIN [Concomitant]
     Active Substance: CASPOFUNGIN
     Indication: Aspergillus infection
     Dosage: 70 MG (70 MG,1 IN 24 HR)
     Route: 065
  12. GENTAMICIN [Concomitant]
     Active Substance: GENTAMICIN
     Indication: Staphylococcal sepsis
     Dosage: 450 MG (ONE DOSE)
     Route: 065

REACTIONS (4)
  - Contraindicated product administered [Unknown]
  - Drug interaction [Unknown]
  - Drug level decreased [Unknown]
  - Treatment failure [Unknown]
